FAERS Safety Report 25166661 (Version 1)
Quarter: 2025Q2

REPORT INFORMATION
  Report Type: Spontaneous
  Country: AR (occurrence: AR)
  Receive Date: 20250407
  Receipt Date: 20250407
  Transmission Date: 20250716
  Serious: Yes (Hospitalization, Other)
  Sender: GENMAB
  Company Number: AR-ABBVIE-6212714

PATIENT
  Sex: Male

DRUGS (1)
  1. EPCORITAMAB [Suspect]
     Active Substance: EPCORITAMAB
     Indication: Diffuse large B-cell lymphoma
     Route: 058
     Dates: end: 20250326

REACTIONS (3)
  - Neoplasm [Unknown]
  - Sepsis [Unknown]
  - Pneumonia [Unknown]
